FAERS Safety Report 20141265 (Version 2)
Quarter: 2021Q4

REPORT INFORMATION
  Report Type: Spontaneous
  Country: JP (occurrence: JP)
  Receive Date: 20211202
  Receipt Date: 20211216
  Transmission Date: 20220303
  Serious: Yes (Hospitalization)
  Sender: FDA-Public Use
  Company Number: JP-TEVA-2021-JP-1982508

PATIENT
  Age: 84 Year
  Sex: Female

DRUGS (5)
  1. CLOPIDOGREL [Suspect]
     Active Substance: CLOPIDOGREL BISULFATE
     Indication: Antiplatelet therapy
     Route: 065
  2. SARPOGRELATE [Suspect]
     Active Substance: SARPOGRELATE
     Indication: Antiplatelet therapy
     Route: 065
  3. LIMAPROST [Suspect]
     Active Substance: LIMAPROST
     Indication: Antiplatelet therapy
     Route: 065
  4. DIPYRIDAMOLE [Suspect]
     Active Substance: DIPYRIDAMOLE
     Indication: Antiplatelet therapy
     Route: 065
  5. ASPIRIN [Suspect]
     Active Substance: ASPIRIN
     Indication: Antiplatelet therapy
     Route: 065

REACTIONS (2)
  - Spinal epidural haematoma [Recovering/Resolving]
  - Paralysis [Recovering/Resolving]
